FAERS Safety Report 23949485 (Version 1)
Quarter: 2024Q2

REPORT INFORMATION
  Report Type: Spontaneous
  Country: US (occurrence: US)
  Receive Date: 20240607
  Receipt Date: 20240607
  Transmission Date: 20240716
  Serious: No
  Sender: FDA-Public Use
  Company Number: US-AMGEN-USASP2024109618

PATIENT
  Age: 61 Year
  Sex: Female

DRUGS (4)
  1. REPATHA [Suspect]
     Active Substance: EVOLOCUMAB
     Indication: Angina unstable
     Dosage: 140 MILLIGRAM, Q2WK
     Route: 065
     Dates: start: 20240216
  2. REPATHA [Suspect]
     Active Substance: EVOLOCUMAB
     Indication: Arteriosclerosis coronary artery
  3. REPATHA [Suspect]
     Active Substance: EVOLOCUMAB
     Indication: Blood calcium increased
  4. REPATHA [Suspect]
     Active Substance: EVOLOCUMAB
     Indication: Renal disorder

REACTIONS (2)
  - Device difficult to use [Unknown]
  - Drug dose omission by device [Unknown]

NARRATIVE: CASE EVENT DATE: 20240603
